FAERS Safety Report 8794801 (Version 3)
Quarter: 2013Q2

REPORT INFORMATION
  Report Type: Spontaneous
  Country: US (occurrence: US)
  Receive Date: 20120917
  Receipt Date: 20130417
  Transmission Date: 20140414
  Serious: Yes (Other)
  Sender: FDA-Public Use
  Company Number: CHPA2012US018682

PATIENT
  Age: 69 Year
  Sex: Female

DRUGS (2)
  1. VOLTAREN GEL [Suspect]
     Indication: OSTEOARTHRITIS
     Dosage: LITTLE BIT ON THE FINGERTIP, UNK
     Route: 061
     Dates: start: 20120822
  2. VOLTAREN GEL [Suspect]
     Dosage: UNK, UNK
     Route: 061
     Dates: start: 2011

REACTIONS (6)
  - Chondropathy [Not Recovered/Not Resolved]
  - Thrombosis [Recovered/Resolved]
  - Pain [Unknown]
  - Off label use [Unknown]
  - Wrong technique in drug usage process [Unknown]
  - Underdose [Unknown]
